FAERS Safety Report 8616864 (Version 23)
Quarter: 2015Q1

REPORT INFORMATION
  Report Type: Report from Study
  Country: CA (occurrence: CA)
  Receive Date: 20120615
  Receipt Date: 20150325
  Transmission Date: 20150721
  Serious: Yes (Death, Hospitalization, Other)
  Sender: FDA-Public Use
  Company Number: PHHY2009CA39715

PATIENT
  Age: 74 Year
  Sex: Male

DRUGS (4)
  1. SANDOSTATIN LAR DEPOT [Suspect]
     Active Substance: OCTREOTIDE ACETATE
     Dosage: 20 MG, QMO
     Route: 030
  2. SANDOSTATIN LAR DEPOT [Suspect]
     Active Substance: OCTREOTIDE ACETATE
     Dosage: 20 MG, EVERY 4 WEEKS
     Route: 030
  3. SANDOSTATIN LAR DEPOT [Suspect]
     Active Substance: OCTREOTIDE ACETATE
     Indication: GASTRINOMA
     Dosage: 20 MG, (EVERY 4 WEEKS)
     Route: 030
     Dates: start: 20060606
  4. BISOPROLOL [Concomitant]
     Active Substance: BISOPROLOL
     Indication: PRODUCT USED FOR UNKNOWN INDICATION
     Dosage: 5 MG, UNK
     Route: 065

REACTIONS (22)
  - Contusion [Unknown]
  - Cataract [Unknown]
  - Bladder cancer [Unknown]
  - Conjunctival discolouration [Unknown]
  - Feeding disorder [Unknown]
  - Anxiety [Unknown]
  - Weight decreased [Unknown]
  - Body temperature decreased [Unknown]
  - Heart rate increased [Unknown]
  - Malaise [Unknown]
  - Blood pressure increased [Unknown]
  - Pain [Unknown]
  - Abdominal pain upper [Unknown]
  - Terminal state [Unknown]
  - Blood urine [Unknown]
  - Renal failure [Unknown]
  - Nasopharyngitis [Unknown]
  - Death [Fatal]
  - General physical health deterioration [Unknown]
  - Pyrexia [Unknown]
  - Decreased appetite [Unknown]
  - Injection site pain [Unknown]

NARRATIVE: CASE EVENT DATE: 20130204
